FAERS Safety Report 9314704 (Version 3)
Quarter: 2013Q4

REPORT INFORMATION
  Report Type: Report from Study
  Country: JP (occurrence: JP)
  Receive Date: 20130529
  Receipt Date: 20131115
  Transmission Date: 20140711
  Serious: Yes (Other)
  Sender: FDA-Public Use
  Company Number: JP-ROCHE-1227495

PATIENT
  Sex: 0

DRUGS (3)
  1. GRANISETRON [Suspect]
     Indication: NEOPLASM MALIGNANT
     Dosage: 30 MINUTES DAILY BEFORE THE ADMINISTRATION OF CHEMOTHERAPY
     Route: 042
  2. APREPITANT [Suspect]
     Indication: NEOPLASM MALIGNANT
     Dosage: 60-90 MINUTES BEFORE ADMINISTRATION OF THE FIRST ANTICANCER DRUGS (DAY 1)
     Route: 048
  3. APREPITANT [Suspect]
     Dosage: IN THE MORNING FOR UP TO FIVE DAYS
     Route: 048

REACTIONS (18)
  - Neutropenia [Unknown]
  - Anaemia [Unknown]
  - Thrombocytopenia [Unknown]
  - Malaise [Unknown]
  - Headache [Unknown]
  - Rash [Unknown]
  - Flushing [Unknown]
  - Diarrhoea [Unknown]
  - Constipation [Unknown]
  - Abdominal pain [Unknown]
  - Insomnia [Unknown]
  - Hiccups [Unknown]
  - Back pain [Unknown]
  - Hypersensitivity [Unknown]
  - Tremor [Unknown]
  - Dizziness [Unknown]
  - Dysuria [Unknown]
  - Myalgia [Unknown]
